APPROVED DRUG PRODUCT: KINEVAC
Active Ingredient: SINCALIDE
Strength: 0.005MG/VIAL
Dosage Form/Route: POWDER;INTRAVENOUS
Application: N017697 | Product #001 | TE Code: AP
Applicant: BRACCO DIAGNOSTICS INC
Approved: Approved Prior to Jan 1, 1982 | RLD: Yes | RS: Yes | Type: RX